FAERS Safety Report 11127202 (Version 1)
Quarter: 2015Q2

REPORT INFORMATION
  Report Type: Report from Study
  Country: CO (occurrence: CO)
  Receive Date: 20150521
  Receipt Date: 20150521
  Transmission Date: 20150821
  Serious: Yes (Death, Hospitalization)
  Sender: FDA-Public Use
  Company Number: CO-BRISTOL-MYERS SQUIBB COMPANY-BMS-2015-025608

PATIENT
  Age: 75 Year
  Sex: Female

DRUGS (1)
  1. CETUXIMAB [Suspect]
     Active Substance: CETUXIMAB
     Indication: COLON CANCER
     Dosage: 750 DF, Q2WK
     Route: 042
     Dates: start: 20150227, end: 20150412

REACTIONS (2)
  - Blister [Unknown]
  - Infection [Fatal]

NARRATIVE: CASE EVENT DATE: 20150227
